FAERS Safety Report 20199182 (Version 1)
Quarter: 2021Q4

REPORT INFORMATION
  Report Type: Spontaneous
  Country: FR (occurrence: FR)
  Receive Date: 20211217
  Receipt Date: 20211217
  Transmission Date: 20220303
  Serious: Yes (Other)
  Sender: FDA-Public Use
  Company Number: None

PATIENT
  Age: 56 Year
  Sex: Female

DRUGS (5)
  1. LEFLUNOMIDE [Suspect]
     Active Substance: LEFLUNOMIDE
     Indication: Rheumatoid arthritis
     Dosage: 1 TABLET PER DAY
     Route: 048
     Dates: start: 20210512
  2. PLAQUENIL [Suspect]
     Active Substance: HYDROXYCHLOROQUINE SULFATE
     Indication: Rheumatoid arthritis
     Dosage: 1 CP PAR JOUR
     Route: 048
     Dates: start: 20210512
  3. PREDNISONE [Concomitant]
     Active Substance: PREDNISONE
     Indication: Rheumatoid arthritis
     Dosage: 1 TABLET PER DAY
     Route: 048
  4. NEBIVOLOL ZENTIVA [Concomitant]
     Indication: Hypertension
     Dosage: 1/4 MORNING 1/4 EVENING
     Route: 048
     Dates: start: 20191010
  5. CEFIXIME EG [Concomitant]
     Indication: Product used for unknown indication
     Dosage: 1TAB MORNING AND EVENING 1 DAY / WEEK
     Route: 048
     Dates: start: 20191010

REACTIONS (2)
  - Tooth discolouration [Not Recovered/Not Resolved]
  - Gingival recession [Not Recovered/Not Resolved]

NARRATIVE: CASE EVENT DATE: 20210101
